FAERS Safety Report 16663583 (Version 1)
Quarter: 2019Q3

REPORT INFORMATION
  Report Type: Report from Study
  Country: CA (occurrence: CA)
  Receive Date: 20190802
  Receipt Date: 20190802
  Transmission Date: 20191004
  Serious: No
  Sender: FDA-Public Use
  Company Number: CA-EXELIXIS-CABO-19020638

PATIENT
  Age: 67 Year
  Sex: Male
  Weight: 130 kg

DRUGS (1)
  1. CABOMETYX [Suspect]
     Active Substance: CABOZANTINIB S-MALATE
     Indication: RENAL CELL CARCINOMA
     Dosage: 60 MG, QD
     Route: 048
     Dates: start: 20190415, end: 20190501

REACTIONS (5)
  - Speech disorder [Not Recovered/Not Resolved]
  - Weight decreased [Unknown]
  - Gait inability [Unknown]
  - Stomatitis [Not Recovered/Not Resolved]
  - Eating disorder [Not Recovered/Not Resolved]

NARRATIVE: CASE EVENT DATE: 201904
